FAERS Safety Report 17815528 (Version 2)
Quarter: 2020Q2

REPORT INFORMATION
  Report Type: Spontaneous
  Country: CN (occurrence: CN)
  Receive Date: 20200522
  Receipt Date: 20200605
  Transmission Date: 20200714
  Serious: Yes (Hospitalization, Other)
  Sender: FDA-Public Use
  Company Number: CN-AXELLIA-003141

PATIENT
  Age: 28 Year
  Sex: Male
  Weight: 90 kg

DRUGS (28)
  1. LINEZOLID. [Suspect]
     Active Substance: LINEZOLID
     Indication: STAPHYLOCOCCAL INFECTION
     Dosage: 600MG EVERY 12H
     Dates: start: 20170630, end: 20170704
  2. METADOXINE [Concomitant]
     Active Substance: METADOXINE
     Dosage: INTRAGASTRIC INJECTION
     Dates: start: 20170614
  3. VANCOMYCIN [Suspect]
     Active Substance: VANCOMYCIN
     Indication: PRODUCT USED FOR UNKNOWN INDICATION
     Dosage: 1G EVERY 12H (INJECTED INTO THE GASTRIC TUBE)
  4. CASPOFUNGIN [Suspect]
     Active Substance: CASPOFUNGIN
     Indication: CANDIDA INFECTION
     Dosage: 70 MG, FOLLOWED BY MAINTENANCE DOSE OF 50 MG/DAY
  5. SODIUM BICARBONATE. [Concomitant]
     Active Substance: SODIUM BICARBONATE
     Indication: STENOTROPHOMONAS INFECTION
     Dosage: INTRAGASTRIC INJECTION
     Dates: start: 20170630
  6. TIGECYCLINE. [Suspect]
     Active Substance: TIGECYCLINE
     Indication: PRODUCT USED FOR UNKNOWN INDICATION
     Dosage: 100MG FOLLOWED BY MAINTENANCE WITH 50MG EVERY 12H
  7. TIGECYCLINE. [Suspect]
     Active Substance: TIGECYCLINE
     Indication: KLEBSIELLA INFECTION
     Dosage: 100MG FOLLOWED BY MAINTENANCE WITH 50MG EVERY 12H
     Dates: start: 20170704
  8. VANCOMYCIN [Suspect]
     Active Substance: VANCOMYCIN
     Indication: KLEBSIELLA INFECTION
     Dosage: ON DAY 29, 2.5G, WITH 24H CONTINUOUS PUMPING
     Dates: start: 20170712
  9. IMMUNOGLOBULIN [Concomitant]
     Route: 041
     Dates: start: 20170615
  10. SILYBUM MARIANUM [Concomitant]
     Active Substance: DIETARY SUPPLEMENT\HERBALS\MILK THISTLE
     Dosage: INTRAGASTRIC INJECTION
     Dates: start: 20170615
  11. CILASTATIN SODIUM/IMIPENEM [Concomitant]
     Active Substance: CILASTATIN SODIUM\IMIPENEM
     Indication: KLEBSIELLA INFECTION
     Route: 041
     Dates: start: 20170613, end: 20170703
  12. MEROPENEM. [Concomitant]
     Active Substance: MEROPENEM
  13. METRONIDAZOLE. [Concomitant]
     Active Substance: METRONIDAZOLE
     Indication: DIARRHOEA
     Dates: start: 20170630, end: 20170712
  14. ASCORBIC ACID. [Concomitant]
     Active Substance: ASCORBIC ACID
     Dosage: 8 G, QD, MICROPUMP INJECTION (1 G/H)
     Dates: start: 20170613
  15. CASPOFUNGIN [Suspect]
     Active Substance: CASPOFUNGIN
     Indication: CANDIDA INFECTION
     Dosage: 70MG, FOLLOWED BY MAINTENANCE DOSE OF 50 MG/DAY
     Dates: start: 20170709
  16. FACTOR I (FIBRINOGEN) [Concomitant]
     Active Substance: FIBRINOGEN HUMAN
  17. COENZYME COMPLEX [Concomitant]
     Active Substance: UNSPECIFIED INGREDIENT
     Dates: start: 20170614
  18. URSODEOXYCHOLATE SODIUM/URSODEOXYCHOLIC ACID [Concomitant]
     Active Substance: URSODIOL
     Dosage: INTRAGASTRIC INJECTION
     Dates: start: 20170613
  19. FLUCONAZOLE. [Suspect]
     Active Substance: FLUCONAZOLE
     Indication: CANDIDA INFECTION
     Dosage: 800MG FOLLOWED BY 400MG MAINTENANCE QD WAS INITIATED ON DAY 18
     Dates: start: 20170701
  20. OMEPRAZOLE. [Concomitant]
     Active Substance: OMEPRAZOLE
     Route: 042
     Dates: start: 20170613
  21. ULINASTATIN [Concomitant]
     Active Substance: ULINASTATIN
     Dosage: 300,000 U, QD, MICROPUMP INJECTION (100,000 U/H)
     Dates: start: 20170613
  22. AMIKACIN. [Concomitant]
     Active Substance: AMIKACIN
     Indication: KLEBSIELLA INFECTION
     Route: 041
     Dates: start: 20170630, end: 20170707
  23. GLUTATHIONE/GLUTATHIONE SODIUM [Concomitant]
     Active Substance: GLUTATHIONE
     Route: 041
     Dates: start: 20170613
  24. ADEMETIONINE/ADEMETIONINE CHLORIDE/ADEMETIONINE DISULFATE DITOSYL/ADEMETIONINE TOSILATE SULFATE [Concomitant]
     Active Substance: ADEMETIONINE
     Route: 041
     Dates: start: 20170614
  25. FLUCONAZOLE. [Suspect]
     Active Substance: FLUCONAZOLE
     Indication: CANDIDA INFECTION
     Dosage: 800MG FOLLOWED BY 400MG MAINTENANCE QD WAS INITIATED ON DAY 18
  26. SULFAMETHOXAZOLE/SULFAMETHOXAZOLE SODIUM [Suspect]
     Active Substance: SULFAMETHOXAZOLE
     Indication: STENOTROPHOMONAS INFECTION
     Dosage: 960MG TID (INJECTED IN GASTRIC TUBE)
     Dates: start: 20170630, end: 20170712
  27. SOMATOSTATIN [Concomitant]
     Active Substance: SOMATOSTATIN
     Dosage: SOMATOSTATIN 6 MG, QD, MICROPUMP INJECTION (3 MG/H)
     Dates: start: 20170613
  28. ORNITHINE ASPARTATE [Concomitant]
     Active Substance: ORNITHINE ASPARTATE
     Route: 041
     Dates: start: 20170615

REACTIONS (2)
  - Hepatic failure [Unknown]
  - Toxicity to various agents [Unknown]
